FAERS Safety Report 18087816 (Version 2)
Quarter: 2020Q3

REPORT INFORMATION
  Report Type: Report from Study
  Country: ES (occurrence: ES)
  Receive Date: 20200729
  Receipt Date: 20200922
  Transmission Date: 20201103
  Serious: Yes (Hospitalization, Other)
  Sender: FDA-Public Use
  Company Number: ES-AMGEN-ESPNI2020120298

PATIENT
  Age: 75 Year
  Sex: Male
  Weight: 54 kg

DRUGS (5)
  1. 5?FU [FLUOROURACIL] [Suspect]
     Active Substance: FLUOROURACIL
     Indication: COLORECTAL CANCER
     Dosage: 630 MILLIGRAM, Q2WK
     Route: 040
     Dates: start: 20200506, end: 20200702
  2. PANITUMUMAB [Suspect]
     Active Substance: PANITUMUMAB
     Indication: COLORECTAL CANCER
     Dosage: 310 MILLIGRAM, Q2WK
     Route: 042
     Dates: start: 20200506, end: 20200702
  3. OXALIPLATIN. [Suspect]
     Active Substance: OXALIPLATIN
     Indication: COLORECTAL CANCER
     Dosage: 130 MILLIGRAM, Q2WK
     Route: 042
     Dates: start: 20200506, end: 20200702
  4. 5?FU [FLUOROURACIL] [Suspect]
     Active Substance: FLUOROURACIL
     Dosage: 3800 MILLIGRAM, Q2WK
     Route: 042
     Dates: start: 20200506, end: 20200702
  5. FOLINIC ACID [Concomitant]
     Active Substance: LEUCOVORIN
     Indication: COLORECTAL CANCER
     Dosage: 630 MILLIGRAM, Q2WK
     Route: 042
     Dates: start: 20200506, end: 20200702

REACTIONS (1)
  - Febrile neutropenia [Recovered/Resolved]

NARRATIVE: CASE EVENT DATE: 20200715
